FAERS Safety Report 4958142-8 (Version None)
Quarter: 2006Q1

REPORT INFORMATION
  Report Type: 
  Country: None (occurrence: None)
  Receive Date: 20060330
  Receipt Date: 20060322
  Transmission Date: 20060701
  Serious: Yes (Death, Life-Threatening, Hospitalization)
  Sender: FDA-Public Use
  Company Number: US-JNJFOC-20060302705

PATIENT
  Sex: Female
  Weight: 62.6 kg

DRUGS (2)
  1. YONDELIS [Suspect]
     Indication: OVARIAN CANCER
     Route: 042
  2. DOXIL [Suspect]
     Indication: OVARIAN CANCER
     Route: 042

REACTIONS (21)
  - BLOOD SODIUM DECREASED [None]
  - BONE MARROW FAILURE [None]
  - BRADYCARDIA [None]
  - CATHETER RELATED INFECTION [None]
  - DEHYDRATION [None]
  - DISSEMINATED INTRAVASCULAR COAGULATION [None]
  - ELECTROMECHANICAL DISSOCIATION [None]
  - HAEMORRHAGIC DIATHESIS [None]
  - HYPOCALCAEMIA [None]
  - HYPOKALAEMIA [None]
  - HYPOXIA [None]
  - LACUNAR INFARCTION [None]
  - LOSS OF CONSCIOUSNESS [None]
  - MALAISE [None]
  - METABOLIC ACIDOSIS [None]
  - NEUTROPENIC SEPSIS [None]
  - PANCYTOPENIA [None]
  - PERIPHERAL ISCHAEMIA [None]
  - RENAL FAILURE ACUTE [None]
  - RENAL TUBULAR NECROSIS [None]
  - URINARY TRACT INFECTION [None]
